FAERS Safety Report 6385885-4 (Version None)
Quarter: 2009Q4

REPORT INFORMATION
  Report Type: 
  Country: None (occurrence: None)
  Receive Date: 20091002
  Receipt Date: 20090123
  Transmission Date: 20100525
  Serious: Yes (Other)
  Sender: FDA-Public Use
  Company Number: US-ASTRAZENECA-2009UW02116

PATIENT
  Age: 62 Year
  Sex: Female
  Weight: 48.1 kg

DRUGS (2)
  1. ARIMIDEX [Suspect]
     Indication: BREAST CANCER
     Route: 048
  2. FOSAMAX [Concomitant]
     Indication: OSTEOPENIA

REACTIONS (4)
  - BLOOD CHOLESTEROL INCREASED [None]
  - HOT FLUSH [None]
  - NAUSEA [None]
  - OSTEOPENIA [None]
